FAERS Safety Report 5889961-1 (Version None)
Quarter: 2008Q3

REPORT INFORMATION
  Report Type: 
  Country: None (occurrence: None)
  Receive Date: 20080919
  Receipt Date: 20080912
  Transmission Date: 20090109
  Serious: Yes (Other)
  Sender: FDA-Public Use
  Company Number: US-GENENTECH-267925

PATIENT
  Age: 64 Year
  Sex: Female
  Weight: 73 kg

DRUGS (2)
  1. AVASTIN [Suspect]
     Indication: BREAST CANCER
     Dosage: UNK
     Dates: start: 20080730
  2. ABRAXANE [Suspect]
     Indication: BREAST CANCER
     Dosage: UNK
     Route: 042
     Dates: start: 20080730, end: 20080730

REACTIONS (3)
  - MUCOSAL INFLAMMATION [None]
  - PERIPHERAL SENSORY NEUROPATHY [None]
  - VISUAL IMPAIRMENT [None]
